FAERS Safety Report 4921232-X (Version None)
Quarter: 2006Q1

REPORT INFORMATION
  Report Type: 
  Country: None (occurrence: None)
  Receive Date: 20060221
  Receipt Date: 20060207
  Transmission Date: 20060701
  Serious: Yes (Hospitalization)
  Sender: FDA-Public Use
  Company Number: 2006018677

PATIENT
  Age: 46 Year
  Sex: Female

DRUGS (3)
  1. NICORETTE [Suspect]
     Indication: SMOKING CESSATION THERAPY
     Dosage: 15 MG, TRANSDERMAL
     Route: 062
     Dates: start: 20060204
  2. LEVOTHYROXINE SODIUM [Concomitant]
  3. DRUG UNSPECIFIED  (DRUG UNSPECIFIED) [Concomitant]

REACTIONS (5)
  - APPLICATION SITE PRURITUS [None]
  - APPLICATION SITE SWELLING [None]
  - BURNING SENSATION [None]
  - PO2 DECREASED [None]
  - WHEEZING [None]
